FAERS Safety Report 8323434-1 (Version None)
Quarter: 2012Q2

REPORT INFORMATION
  Report Type: 
  Country: None (occurrence: None)
  Receive Date: 20120430
  Receipt Date: 20120404
  Transmission Date: 20120825
  Serious: Yes (Hospitalization)
  Sender: FDA-Public Use
  Company Number: PHHY2012GR035585

PATIENT
  Sex: Female

DRUGS (1)
  1. GILENYA [Suspect]
     Dosage: 1 DF, QD
     Route: 048

REACTIONS (2)
  - ATRIOVENTRICULAR BLOCK [None]
  - BRADYCARDIA [None]
